FAERS Safety Report 11464482 (Version 3)
Quarter: 2015Q3

REPORT INFORMATION
  Report Type: Spontaneous
  Country: US (occurrence: US)
  Receive Date: 20150831
  Receipt Date: 20150903
  Transmission Date: 20151125
  Serious: No
  Sender: FDA-Public Use
  Company Number: US-ELI_LILLY_AND_COMPANY-US200901004595

PATIENT
  Sex: Female

DRUGS (12)
  1. FUROSEMIDE. [Concomitant]
     Active Substance: FUROSEMIDE
  2. FISH OIL [Concomitant]
     Active Substance: FISH OIL
     Dosage: UNK, UNKNOWN
     Route: 065
  3. SEROQUEL XR [Concomitant]
     Active Substance: QUETIAPINE FUMARATE
     Dosage: UNK, UNKNOWN
     Route: 065
  4. ASPIRIN. [Concomitant]
     Active Substance: ASPIRIN
     Dosage: UNK, UNKNOWN
     Route: 065
  5. KLONOPIN [Concomitant]
     Active Substance: CLONAZEPAM
  6. ESTRADIOL. [Concomitant]
     Active Substance: ESTRADIOL
  7. SUCRALFATE. [Concomitant]
     Active Substance: SUCRALFATE
  8. PRAVASTATIN [Concomitant]
     Active Substance: PRAVASTATIN\PRAVASTATIN SODIUM
  9. MIRTAZAPINE. [Concomitant]
     Active Substance: MIRTAZAPINE
  10. FOSAMAX [Concomitant]
     Active Substance: ALENDRONATE SODIUM
  11. MULTIVITAMIN [Concomitant]
     Active Substance: VITAMINS
     Dosage: UNK, UNKNOWN
     Route: 065
  12. CYMBALTA [Suspect]
     Active Substance: DULOXETINE HYDROCHLORIDE
     Indication: DEPRESSION
     Dosage: 30 MG, 3/D
     Dates: end: 20120706

REACTIONS (11)
  - Crying [Unknown]
  - Drug withdrawal syndrome [Unknown]
  - Fear [Unknown]
  - Malaise [Unknown]
  - Thinking abnormal [Unknown]
  - Feeling abnormal [Unknown]
  - Feeling jittery [Unknown]
  - Hiccups [Unknown]
  - Depression [Unknown]
  - Frustration [Unknown]
  - Vomiting [Unknown]
